FAERS Safety Report 6707796-4 (Version None)
Quarter: 2010Q2

REPORT INFORMATION
  Report Type: 
  Country: None (occurrence: None)
  Receive Date: 20100503
  Receipt Date: 20090601
  Transmission Date: 20101027
  Serious: No
  Sender: FDA-Public Use
  Company Number: US-ASTRAZENECA-2009UW13880

PATIENT
  Sex: Male
  Weight: 72.6 kg

DRUGS (4)
  1. NEXIUM [Suspect]
     Indication: GASTROOESOPHAGEAL REFLUX DISEASE
     Route: 048
  2. CRESTOR [Concomitant]
  3. EFFEXOR [Concomitant]
  4. REGLAN [Concomitant]

REACTIONS (6)
  - ANGER [None]
  - CHEST PAIN [None]
  - CHOKING [None]
  - DEPRESSION [None]
  - SOMNOLENCE [None]
  - WEIGHT INCREASED [None]
